FAERS Safety Report 6902704-5 (Version None)
Quarter: 2010Q3

REPORT INFORMATION
  Report Type: 
  Country: None (occurrence: None)
  Receive Date: 20100803
  Receipt Date: 20080616
  Transmission Date: 20110219
  Serious: No
  Sender: FDA-Public Use
  Company Number: US-PFIZER INC-2008045888

PATIENT
  Sex: Female
  Weight: 79.5 kg

DRUGS (11)
  1. LYRICA [Suspect]
     Indication: FIBROMYALGIA
     Route: 048
     Dates: start: 20080501
  2. LYRICA [Suspect]
     Indication: MYALGIA
  3. LYRICA [Suspect]
     Indication: FATIGUE
  4. VITAMIN TAB [Concomitant]
  5. MULTI-VITAMINS [Concomitant]
  6. VITAMIN B COMPLEX CAP [Concomitant]
  7. IRON [Concomitant]
  8. MELATONIN [Concomitant]
  9. ALBUTEROL [Concomitant]
     Route: 055
  10. ADVAIR DISKUS 100/50 [Concomitant]
  11. PARA-SELTZER [Concomitant]

REACTIONS (3)
  - ABDOMINAL DISTENSION [None]
  - FLATULENCE [None]
  - WEIGHT INCREASED [None]
